FAERS Safety Report 23173899 (Version 1)
Quarter: 2023Q4

REPORT INFORMATION
  Report Type: Spontaneous
  Country: JP (occurrence: JP)
  Receive Date: 20231111
  Receipt Date: 20231111
  Transmission Date: 20240110
  Serious: Yes (Death)
  Sender: FDA-Public Use
  Company Number: JP-TEVA-2023-JP-002456J

PATIENT
  Age: 99 Year

DRUGS (1)
  1. ALPRAZOLAM [Suspect]
     Active Substance: ALPRAZOLAM
     Indication: Autonomic nervous system imbalance
     Route: 048

REACTIONS (1)
  - Death [Fatal]
